APPROVED DRUG PRODUCT: DIUTENSEN-R
Active Ingredient: METHYCLOTHIAZIDE; RESERPINE
Strength: 2.5MG;0.1MG
Dosage Form/Route: TABLET;ORAL
Application: N012708 | Product #005
Applicant: MEDPOINTE PHARMACEUTICALS MEDPOINTE HEALTHCARE INC
Approved: Approved Prior to Jan 1, 1982 | RLD: No | RS: No | Type: DISCN